FAERS Safety Report 7113001-X (Version None)
Quarter: 2010Q4

REPORT INFORMATION
  Report Type: 
  Country: None (occurrence: None)
  Receive Date: 20101119
  Receipt Date: 20101011
  Transmission Date: 20110411
  Serious: No
  Sender: FDA-Public Use
  Company Number: US-ASTRAZENECA-2010SE47930

PATIENT
  Age: 64 Year
  Sex: Female
  Weight: 63.5 kg

DRUGS (3)
  1. VIMOVO [Suspect]
     Indication: ARTHRITIS
     Route: 048
     Dates: start: 20101005, end: 20101010
  2. PROZAC [Concomitant]
  3. SYNTHROID [Concomitant]

REACTIONS (3)
  - DRUG DOSE OMISSION [None]
  - DYSPEPSIA [None]
  - MUSCULOSKELETAL STIFFNESS [None]
